FAERS Safety Report 18342180 (Version 1)
Quarter: 2020Q4

REPORT INFORMATION
  Report Type: Spontaneous
  Country: US (occurrence: US)
  Receive Date: 20201005
  Receipt Date: 20201005
  Transmission Date: 20210113
  Serious: No
  Sender: FDA-Public Use
  Company Number: US-LUPIN PHARMACEUTICALS INC.-2020-03864

PATIENT
  Sex: Female

DRUGS (3)
  1. CYTOMEL [Interacting]
     Active Substance: LIOTHYRONINE SODIUM
     Dosage: 10 MILLIGRAM, UNK (DOSE INCREASED)
     Route: 065
  2. NIKKI [Suspect]
     Active Substance: DROSPIRENONE\ETHINYL ESTRADIOL
     Indication: CONTRACEPTION
     Dosage: UNK
     Route: 065
  3. CYTOMEL [Interacting]
     Active Substance: LIOTHYRONINE SODIUM
     Indication: TRI-IODOTHYRONINE DECREASED
     Dosage: 5 MILLIGRAM,  UNK
     Route: 065

REACTIONS (3)
  - Feeling jittery [Unknown]
  - Nervousness [Unknown]
  - Drug interaction [Unknown]
